FAERS Safety Report 4584653-3 (Version None)
Quarter: 2005Q1

REPORT INFORMATION
  Report Type: 
  Country: None (occurrence: None)
  Receive Date: 20050125
  Receipt Date: 20041028
  Transmission Date: 20050727
  Serious: No
  Sender: FDA-Public Use
  Company Number: USA040978570

PATIENT
  Age: 60 Year
  Sex: Female
  Weight: 50 kg

DRUGS (1)
  1. FORTEO [Suspect]
     Indication: OSTEOPOROSIS
     Dosage: 20 UG SDAY
     Dates: start: 20040903

REACTIONS (6)
  - BLOOD URINE [None]
  - CYSTITIS [None]
  - ENDOMETRIOSIS [None]
  - URINARY TRACT INFECTION [None]
  - UTERINE POLYP [None]
  - VAGINAL HAEMORRHAGE [None]
